FAERS Safety Report 7570804-5 (Version None)
Quarter: 2011Q2

REPORT INFORMATION
  Report Type: 
  Country: None (occurrence: None)
  Receive Date: 20110624
  Receipt Date: 20110621
  Transmission Date: 20111010
  Serious: Yes (Hospitalization)
  Sender: FDA-Public Use
  Company Number: US-SANOFI-AVENTIS-2011SA031478

PATIENT
  Age: 61 Year
  Sex: Female
  Weight: 88.7 kg

DRUGS (8)
  1. LOVENOX [Suspect]
     Indication: THROMBOSIS PROPHYLAXIS
     Route: 051
     Dates: start: 20110121, end: 20110126
  2. ASPIRIN [Concomitant]
     Indication: ANTIPLATELET THERAPY
     Route: 065
  3. LEVOTHYROXINE SODIUM [Concomitant]
     Indication: HYPOTHYROIDISM
  4. ATORVASTATIN CALCIUM [Concomitant]
  5. LOVENOX [Suspect]
     Route: 048
  6. OMEPRAZOLE [Concomitant]
  7. LABETALOL HCL [Concomitant]
     Indication: HEART RATE
  8. AMLODIPINE BESYLATE [Concomitant]
     Indication: HYPERTENSION

REACTIONS (2)
  - RENAL FAILURE ACUTE [None]
  - ACCIDENTAL EXPOSURE [None]
